FAERS Safety Report 14615200 (Version 1)
Quarter: 2018Q1

REPORT INFORMATION
  Report Type: Report from Study
  Country: US (occurrence: US)
  Receive Date: 20180308
  Receipt Date: 20180308
  Transmission Date: 20180509
  Serious: Yes (Death, Hospitalization)
  Sender: FDA-Public Use
  Company Number: US-ACTELION-A-NJ2017-157859

PATIENT
  Age: 82 Year
  Sex: Female

DRUGS (19)
  1. COUMADIN [Concomitant]
     Active Substance: WARFARIN SODIUM
  2. OPSUMIT [Suspect]
     Active Substance: MACITENTAN
     Indication: PULMONARY HYPERTENSION
     Dosage: 10 MG, QD
     Route: 048
     Dates: start: 20170411, end: 20180131
  3. ZYLOPRIM [Concomitant]
     Active Substance: ALLOPURINOL
     Dosage: UNK
     Dates: start: 201704
  4. ZANTAC [Concomitant]
     Active Substance: RANITIDINE HYDROCHLORIDE
     Dosage: UNK
     Dates: start: 201704
  5. OXYGEN. [Concomitant]
     Active Substance: OXYGEN
  6. VITAMIN C [Concomitant]
     Active Substance: ASCORBIC ACID
     Dosage: UNK
     Dates: start: 201704
  7. VITAMIN B12 [Concomitant]
     Active Substance: CYANOCOBALAMIN
     Dosage: UNK
     Dates: start: 201704
  8. TIAZAC [Concomitant]
     Active Substance: DILTIAZEM HYDROCHLORIDE
     Dosage: UNK
     Dates: start: 201704
  9. FERROUS SULFATE. [Concomitant]
     Active Substance: FERROUS SULFATE
     Dosage: UNK
     Dates: start: 201704
  10. FOLIC ACID. [Concomitant]
     Active Substance: FOLIC ACID
     Dosage: UNK
     Dates: start: 201704
  11. KLOR-CON [Concomitant]
     Active Substance: POTASSIUM CHLORIDE
     Dosage: UNK
     Dates: start: 201704
  12. SYMBICORT [Concomitant]
     Active Substance: BUDESONIDE\FORMOTEROL FUMARATE DIHYDRATE
     Dosage: UNK
     Route: 055
     Dates: start: 201704
  13. SILDENAFIL. [Concomitant]
     Active Substance: SILDENAFIL
  14. DUONEB [Concomitant]
     Active Substance: ALBUTEROL SULFATE\IPRATROPIUM BROMIDE
     Dosage: UNK
     Dates: start: 201704
  15. TYLENOL [Concomitant]
     Active Substance: ACETAMINOPHEN
     Dosage: UNK
     Dates: start: 201704
  16. VITAMIN D3 [Concomitant]
     Active Substance: CHOLECALCIFEROL
     Dosage: UNK
     Dates: start: 201704
  17. NORCO [Concomitant]
     Active Substance: ACETAMINOPHEN\HYDROCODONE BITARTRATE
     Dosage: UNK
     Dates: start: 201704
  18. TOPROL XL [Concomitant]
     Active Substance: METOPROLOL SUCCINATE
     Dosage: UNK
     Dates: start: 201704
  19. PRILOSEC [Concomitant]
     Active Substance: OMEPRAZOLE MAGNESIUM
     Dosage: UNK
     Dates: start: 201704

REACTIONS (22)
  - Pneumonia [Recovered/Resolved]
  - Sputum discoloured [Recovered/Resolved]
  - Cough [Recovered/Resolved]
  - Fall [Not Recovered/Not Resolved]
  - Troponin increased [Not Recovered/Not Resolved]
  - Hypoxia [Not Recovered/Not Resolved]
  - Escherichia test positive [Not Recovered/Not Resolved]
  - Citrobacter test positive [Not Recovered/Not Resolved]
  - Atrial fibrillation [Not Recovered/Not Resolved]
  - Respiratory failure [Fatal]
  - Pulmonary congestion [Recovered/Resolved]
  - Subarachnoid haemorrhage [Not Recovered/Not Resolved]
  - Supraventricular tachycardia [Not Recovered/Not Resolved]
  - Dyspnoea [Recovered/Resolved]
  - Sepsis [Not Recovered/Not Resolved]
  - Hypotension [Not Recovered/Not Resolved]
  - Anticoagulation drug level above therapeutic [Not Recovered/Not Resolved]
  - Pulmonary hypertension [Unknown]
  - Nasopharyngitis [Recovered/Resolved]
  - Left ventricular failure [Not Recovered/Not Resolved]
  - Heart rate increased [Not Recovered/Not Resolved]
  - Acidosis [Not Recovered/Not Resolved]

NARRATIVE: CASE EVENT DATE: 201704
